FAERS Safety Report 21487043 (Version 3)
Quarter: 2022Q4

REPORT INFORMATION
  Report Type: Spontaneous
  Country: JP (occurrence: JP)
  Receive Date: 20221020
  Receipt Date: 20221214
  Transmission Date: 20230113
  Serious: Yes (Hospitalization, Other)
  Sender: FDA-Public Use
  Company Number: JP-TAKEDA-2022TUS076130

PATIENT
  Age: 60 Year
  Sex: Female
  Weight: 48 kg

DRUGS (3)
  1. LIALDA [Suspect]
     Active Substance: MESALAMINE
     Indication: Colitis ulcerative
     Dosage: UNK
     Route: 048
     Dates: start: 202109, end: 202109
  2. LIALDA [Suspect]
     Active Substance: MESALAMINE
     Dosage: 4800 MILLIGRAM, QD
     Route: 048
     Dates: start: 20210927, end: 20210929
  3. PITAVASTATIN CALCIUM [Concomitant]
     Active Substance: PITAVASTATIN CALCIUM
     Dosage: 1 MILLIGRAM, QD
     Route: 065

REACTIONS (3)
  - Haematochezia [Recovering/Resolving]
  - Pyrexia [Recovering/Resolving]
  - Abdominal pain [Recovering/Resolving]

NARRATIVE: CASE EVENT DATE: 20210929
